FAERS Safety Report 25253746 (Version 2)
Quarter: 2025Q4

REPORT INFORMATION
  Report Type: Spontaneous
  Country: US (occurrence: US)
  Receive Date: 20250430
  Receipt Date: 20251219
  Transmission Date: 20260117
  Serious: No
  Sender: ROCHE
  Company Number: US-ROCHE-10000269855

PATIENT
  Sex: Female

DRUGS (9)
  1. XOLAIR [Suspect]
     Active Substance: OMALIZUMAB
     Indication: Angioedema
     Dosage: INJECT 300MG (2 PENS) SUBCUTANEOUSLY EVERY 4 WEEKS
     Route: 058
  2. XOLAIR [Suspect]
     Active Substance: OMALIZUMAB
     Route: 058
  3. ALLEGRA ALLE [Concomitant]
     Dosage: TAB 180MG
  4. EPIPEN [Concomitant]
     Active Substance: EPINEPHRINE
     Dosage: SOA 0.3MG/0.,
  5. ICATIBANT AC [Concomitant]
     Dosage: 300MG/3ML
  6. LATANOPROST [Concomitant]
     Active Substance: LATANOPROST
     Dosage: SOL 0.005 PERCENT
  7. LOVASTATIN [Concomitant]
     Active Substance: LOVASTATIN
     Dosage: TAB 10MG
  8. PANTOPRAZOLE [Concomitant]
     Active Substance: PANTOPRAZOLE
     Dosage: TBE 40MG
  9. ZYRTEC ALLER [Concomitant]
     Dosage: TAB 10MG

REACTIONS (2)
  - Off label use [Unknown]
  - Dyskinesia [Unknown]
